FAERS Safety Report 5368155-2 (Version None)
Quarter: 2007Q2

REPORT INFORMATION
  Report Type: 
  Country: None (occurrence: None)
  Receive Date: 20070621
  Receipt Date: 20070621
  Transmission Date: 20071010
  Serious: Yes (Life-Threatening, Hospitalization)
  Sender: FDA-Public Use
  Company Number: None

PATIENT
  Age: 19 Year
  Sex: Female
  Weight: 52.1637 kg

DRUGS (2)
  1. DROPERIDOL [Suspect]
     Indication: PROCEDURAL NAUSEA
     Dosage: IVP - ONE TIME 0.625 MG
     Route: 042
     Dates: start: 20070318
  2. DROPERIDOL [Suspect]
     Indication: PROCEDURAL VOMITING
     Dosage: IVP - ONE TIME 0.625 MG
     Route: 042
     Dates: start: 20070318

REACTIONS (9)
  - CATATONIA [None]
  - CONVULSION [None]
  - FEELING HOT [None]
  - HYPERHIDROSIS [None]
  - MALAISE [None]
  - MOVEMENT DISORDER [None]
  - PANIC REACTION [None]
  - TACHYCARDIA [None]
  - TRISMUS [None]
